FAERS Safety Report 5831464-4 (Version None)
Quarter: 2008Q3

REPORT INFORMATION
  Report Type: 
  Country: None (occurrence: None)
  Receive Date: 20080730
  Receipt Date: 20080721
  Transmission Date: 20090109
  Serious: Yes (Other)
  Sender: FDA-Public Use
  Company Number: 163-20785-08071334

PATIENT
  Age: 74 Year
  Sex: Female

DRUGS (5)
  1. THALOMID [Suspect]
     Indication: MULTIPLE MYELOMA
     Dosage: 100 MG, EVERY NIGHT AT BEDTIME, ORAL;  100-200MG, DAILY, ORAL; DAILY, ORAL; 50MG-100MG, DAILY, ORAL
     Route: 048
     Dates: start: 20030210, end: 20041201
  2. THALOMID [Suspect]
     Indication: MULTIPLE MYELOMA
     Dosage: 100 MG, EVERY NIGHT AT BEDTIME, ORAL;  100-200MG, DAILY, ORAL; DAILY, ORAL; 50MG-100MG, DAILY, ORAL
     Route: 048
     Dates: start: 20050405, end: 20060901
  3. THALOMID [Suspect]
     Indication: MULTIPLE MYELOMA
     Dosage: 100 MG, EVERY NIGHT AT BEDTIME, ORAL;  100-200MG, DAILY, ORAL; DAILY, ORAL; 50MG-100MG, DAILY, ORAL
     Route: 048
     Dates: start: 20080605, end: 20080101
  4. THALOMID [Suspect]
     Indication: MULTIPLE MYELOMA
     Dosage: 100 MG, EVERY NIGHT AT BEDTIME, ORAL;  100-200MG, DAILY, ORAL; DAILY, ORAL; 50MG-100MG, DAILY, ORAL
     Route: 048
     Dates: start: 20080422, end: 20080601
  5. THALOMID [Suspect]
     Indication: MULTIPLE MYELOMA
     Dosage: 100 MG, EVERY NIGHT AT BEDTIME, ORAL;  100-200MG, DAILY, ORAL; DAILY, ORAL; 50MG-100MG, DAILY, ORAL
     Route: 048
     Dates: start: 20021213

REACTIONS (1)
  - UNEVALUABLE EVENT [None]
